FAERS Safety Report 8055846-8 (Version None)
Quarter: 2012Q1

REPORT INFORMATION
  Report Type: 
  Country: None (occurrence: None)
  Receive Date: 20120119
  Receipt Date: 20120119
  Transmission Date: 20120608
  Serious: Yes (Death)
  Sender: FDA-Public Use
  Company Number: None

PATIENT
  Age: 28 Year
  Sex: Male
  Weight: 70.9 kg

DRUGS (2)
  1. PAROXETINE [Concomitant]
     Dosage: 40MG
     Route: 048
  2. QUETIAPINE [Suspect]
     Dosage: 50MG QAM, QNOON, 100MG QHS
     Route: 048

REACTIONS (5)
  - NEUROLEPTIC MALIGNANT SYNDROME [None]
  - HAEMODIALYSIS [None]
  - RHABDOMYOLYSIS [None]
  - RENAL FAILURE ACUTE [None]
  - BLOOD POTASSIUM INCREASED [None]
